FAERS Safety Report 7042722-2 (Version None)
Quarter: 2010Q4

REPORT INFORMATION
  Report Type: 
  Country: None (occurrence: None)
  Receive Date: 20101013
  Receipt Date: 20091027
  Transmission Date: 20110411
  Serious: No
  Sender: FDA-Public Use
  Company Number: US-ASTRAZENECA-2009SE24085

PATIENT
  Sex: Female

DRUGS (2)
  1. SYMBICORT [Suspect]
     Dosage: 80/4.5 UG 2 PUFFS
     Route: 055
     Dates: start: 20090902
  2. SYMBICORT [Suspect]
     Dosage: 80/4.5 UG 1 PUFFS
     Route: 055

REACTIONS (2)
  - DEVICE FAILURE [None]
  - DRUG INEFFECTIVE [None]
